FAERS Safety Report 6269466-9 (Version None)
Quarter: 2009Q3

REPORT INFORMATION
  Report Type: 
  Country: None (occurrence: None)
  Receive Date: 20090715
  Receipt Date: 20080821
  Transmission Date: 20100115
  Serious: No
  Sender: FDA-Public Use
  Company Number: US-TYCO HEALTHCARE/MALLINCKRODT-T200801387

PATIENT

DRUGS (3)
  1. OXYCODONE HCL [Suspect]
     Indication: PAIN
     Dosage: ONE TAB EVERY 4 TO 5 HOURS
     Route: 048
     Dates: start: 20080812, end: 20080817
  2. CLINDAMYCIN [Concomitant]
     Indication: DRUG THERAPY
     Route: 048
     Dates: end: 20080801
  3. SEVERAL UNSPECIFIED [Concomitant]

REACTIONS (2)
  - BURNING SENSATION [None]
  - DYSPEPSIA [None]
